FAERS Safety Report 9579866 (Version 6)
Quarter: 2014Q1

REPORT INFORMATION
  Report Type: Spontaneous
  Country: ZA (occurrence: ZA)
  Receive Date: 20131002
  Receipt Date: 20140205
  Transmission Date: 20141002
  Serious: Yes (Hospitalization, Disabling)
  Sender: FDA-Public Use
  Company Number: ZA-AMGEN-ZAFSP2013068577

PATIENT
  Sex: Male

DRUGS (6)
  1. NEULASTIM [Suspect]
     Indication: LYMPHOMA
     Dosage: UNK
     Route: 065
  2. RITUXIMAB [Concomitant]
     Dosage: UNK
  3. CYCLOPHOSPHAMIDE [Concomitant]
     Dosage: UNK
  4. DOXORUBICIN [Concomitant]
     Dosage: UNK
  5. VINCRISTINE [Concomitant]
     Dosage: UNK
  6. PREDNISONE [Concomitant]
     Dosage: UNK

REACTIONS (3)
  - Neutropenic sepsis [Unknown]
  - Febrile neutropenia [Not Recovered/Not Resolved]
  - Drug ineffective [Unknown]
